FAERS Safety Report 8275202-7 (Version None)
Quarter: 2012Q2

REPORT INFORMATION
  Report Type: 
  Country: None (occurrence: None)
  Receive Date: 20120411
  Receipt Date: 20120405
  Transmission Date: 20120825
  Serious: Yes (Hospitalization)
  Sender: FDA-Public Use
  Company Number: PHHY2012IT029182

PATIENT
  Sex: Female

DRUGS (6)
  1. LOPRESSOR [Concomitant]
  2. ENOXAPARIN SODIUM [Concomitant]
  3. NEXIUM [Concomitant]
  4. INDAPAMIDE [Suspect]
     Indication: HYPERTENSION
     Dosage: 1 DF, POSOLOGICAL UNIT
     Route: 048
     Dates: start: 20101109, end: 20111109
  5. MADOPAR [Concomitant]
  6. AMARYL [Concomitant]

REACTIONS (1)
  - HYPOKALAEMIA [None]
